FAERS Safety Report 23789027 (Version 1)
Quarter: 2024Q2

REPORT INFORMATION
  Report Type: Spontaneous
  Country: CN (occurrence: CN)
  Receive Date: 20240426
  Receipt Date: 20240426
  Transmission Date: 20240716
  Serious: Yes (Hospitalization, Other)
  Sender: FDA-Public Use
  Company Number: CN-009507513-2404CHN008862

PATIENT
  Age: 65 Year
  Sex: Male

DRUGS (4)
  1. KEYTRUDA [Suspect]
     Active Substance: PEMBROLIZUMAB
     Indication: Oesophageal carcinoma
     Dosage: 200 MG, Q3W, CYCLE 1 TO CYCLE 2
     Route: 041
     Dates: start: 20230413, end: 20230506
  2. KEYTRUDA [Suspect]
     Active Substance: PEMBROLIZUMAB
     Dosage: CYCLE 4 TO CYCLE 10
     Dates: start: 20230802, end: 20231225
  3. CISPLATIN [Concomitant]
     Active Substance: CISPLATIN
     Indication: Oesophageal carcinoma
     Dosage: 40 MG, DAYS 1 TO 3 Q3W, THE FIRST AND SECOND CYCLE
     Dates: start: 20230412, end: 20230506
  4. FLUOROURACIL [Concomitant]
     Active Substance: FLUOROURACIL
     Indication: Oesophageal carcinoma
     Dosage: 5000 MG CONTINUOUS INTRAVENOUS (INFUSION) (CIV) 96H, Q3W, THE FIRST AND SECOND CYCLE
     Route: 042
     Dates: start: 20230412, end: 20230506

REACTIONS (7)
  - Immune-mediated lung disease [Recovering/Resolving]
  - Malignant neoplasm progression [Unknown]
  - Aortic arteriosclerosis [Unknown]
  - Arteriosclerosis coronary artery [Unknown]
  - Emphysema [Unknown]
  - Pleural effusion [Unknown]
  - Inappropriate schedule of product administration [Unknown]

NARRATIVE: CASE EVENT DATE: 20230506
